FAERS Safety Report 18298931 (Version 2)
Quarter: 2020Q3

REPORT INFORMATION
  Report Type: Spontaneous
  Country: US (occurrence: US)
  Receive Date: 20200923
  Receipt Date: 20200930
  Transmission Date: 20201103
  Serious: No
  Sender: FDA-Public Use
  Company Number: US-ROCHE-2681952

PATIENT
  Sex: Female

DRUGS (1)
  1. HERCEPTIN [Suspect]
     Active Substance: TRASTUZUMAB
     Indication: BREAST CANCER FEMALE
     Route: 065

REACTIONS (8)
  - Onychoclasis [Unknown]
  - Product dose omission in error [Unknown]
  - Pruritus [Unknown]
  - Asthenia [Unknown]
  - Nausea [Unknown]
  - Illness [Unknown]
  - Skin fissures [Unknown]
  - Vomiting [Unknown]
